FAERS Safety Report 7635240-1 (Version None)
Quarter: 2011Q3

REPORT INFORMATION
  Report Type: 
  Country: None (occurrence: None)
  Receive Date: 20110718
  Receipt Date: 20110705
  Transmission Date: 20111222
  Serious: Yes (Hospitalization)
  Sender: FDA-Public Use
  Company Number: PYR-11-15

PATIENT
  Age: 3 Year
  Sex: Male

DRUGS (6)
  1. ISONIAZID [Concomitant]
  2. RIFAMPICIN [Concomitant]
  3. ETHIONAMIDE [Concomitant]
  4. PREDNISONE [Concomitant]
  5. ETHAMBUTOL HYDROCHLORIDE [Concomitant]
  6. PYRAZINAMIDE [Suspect]
     Indication: TUBERCULOSIS
     Dosage: 25MG/KG DAY

REACTIONS (1)
  - IMMUNE RECONSTITUTION SYNDROME [None]
